FAERS Safety Report 12437437 (Version 1)
Quarter: 2016Q2

REPORT INFORMATION
  Report Type: Other
  Country: TR (occurrence: TR)
  Receive Date: 20160606
  Receipt Date: 20160606
  Transmission Date: 20160815
  Serious: Yes (Other)
  Sender: FDA-Public Use
  Company Number: TR-LUPIN PHARMACEUTICALS INC.-2016-02385

PATIENT
  Age: 40 Year
  Sex: Male
  Weight: 45 kg

DRUGS (13)
  1. MORPHINE [Suspect]
     Active Substance: MORPHINE
     Dosage: 2 MG
     Route: 065
  2. DIAZEM [Concomitant]
     Indication: PAIN
     Route: 065
  3. FENTANYL. [Suspect]
     Active Substance: FENTANYL
     Indication: PAIN
     Dosage: 12.5, 25, 50, AND 100 MCG
     Route: 065
  4. MORPHINE [Suspect]
     Active Substance: MORPHINE
     Route: 065
  5. TRAMADOL. [Suspect]
     Active Substance: TRAMADOL
     Indication: PAIN
     Route: 065
  6. TRAMADOL. [Suspect]
     Active Substance: TRAMADOL
     Route: 065
  7. MORPHINE [Suspect]
     Active Substance: MORPHINE
     Indication: PAIN
     Route: 037
  8. FENTANYL. [Suspect]
     Active Substance: FENTANYL
     Dosage: FIRST 100 THEN 150-200 MCG
     Route: 065
  9. DEXKETOPROFEN TROMETAMOL [Concomitant]
     Active Substance: DEXKETOPROFEN TROMETAMOL
     Indication: PAIN
     Route: 065
  10. DEXKETOPROFEN TROMETAMOL [Concomitant]
     Active Substance: DEXKETOPROFEN TROMETAMOL
     Route: 065
  11. MORPHINE + BUPIVACAINE [Concomitant]
     Indication: PAIN
     Dosage: 10 MG + %0.25/5 ML/DAILY
     Route: 065
  12. PREGABALIN. [Concomitant]
     Active Substance: PREGABALIN
     Indication: PAIN
     Route: 065
  13. MORPHINE + BUPIVACAINE [Concomitant]
     Dosage: FIRST 100 THEN 150-200 MCG
     Route: 065

REACTIONS (1)
  - Hyperaesthesia [Recovered/Resolved]
